FAERS Safety Report 11414479 (Version 1)
Quarter: 2015Q3

REPORT INFORMATION
  Report Type: Spontaneous
  Country: US (occurrence: None)
  Receive Date: 20150821
  Receipt Date: 20150821
  Transmission Date: 20151125
  Serious: Yes (Other)
  Sender: FDA-Public Use
  Company Number: US-2015INT000509

PATIENT
  Age: 54 Year
  Sex: Male

DRUGS (2)
  1. CISPLATIN. [Suspect]
     Active Substance: CISPLATIN
     Indication: TESTIS CANCER
  2. ETOPOSIDE (ETOPOSIDE) [Suspect]
     Active Substance: ETOPOSIDE
     Indication: TESTIS CANCER

REACTIONS (6)
  - Cerebral infarction [None]
  - Nausea [None]
  - Hemianopia homonymous [None]
  - Headache [None]
  - Carotid artery thrombosis [None]
  - Muscular weakness [None]
